FAERS Safety Report 19066901 (Version 4)
Quarter: 2021Q2

REPORT INFORMATION
  Report Type: Spontaneous
  Country: DE (occurrence: DE)
  Receive Date: 20210329
  Receipt Date: 20210518
  Transmission Date: 20210717
  Serious: Yes (Hospitalization, Other)
  Sender: FDA-Public Use
  Company Number: DE-AUROBINDO-AUR-APL-2021-011769

PATIENT
  Sex: Female
  Weight: 122 kg

DRUGS (26)
  1. INDOMETHACIN. [Concomitant]
     Active Substance: INDOMETHACIN
     Indication: PRODUCT USED FOR UNKNOWN INDICATION
     Dosage: 75 MILLIGRAM, TWO TIMES A DAY
     Route: 065
  2. ODANSE [Concomitant]
     Indication: PRODUCT USED FOR UNKNOWN INDICATION
     Dosage: 1 PUFF, ONCE A DAY
     Route: 065
  3. RELVAR ELLIPTA [Concomitant]
     Active Substance: FLUTICASONE FUROATE\VILANTEROL TRIFENATATE
     Dosage: 92?G/22?G, ONCE A DAY, 1X DAILY (MORNING)
     Route: 055
     Dates: start: 201712
  4. VALSARTAN 1A PHARMA PLUS [Suspect]
     Active Substance: HYDROCHLOROTHIAZIDE\VALSARTAN
     Dosage: 320 MILLIGRAM, ONCE A DAY
     Route: 065
  5. NOVOPULMON [Concomitant]
     Active Substance: BUDESONIDE
     Indication: PRODUCT USED FOR UNKNOWN INDICATION
     Dosage: 200 MICROGRAM, TWO TIMES A DAY
     Route: 065
  6. VALSACOR [Concomitant]
     Active Substance: VALSARTAN
     Dosage: UNK
     Route: 065
     Dates: start: 201707, end: 201710
  7. VALSARTAN 1A PHARMA PLUS [Suspect]
     Active Substance: HYDROCHLOROTHIAZIDE\VALSARTAN
     Indication: HYPERTENSION
     Dosage: 640 MILLIGRAM, ONCE A DAY (20 MG/25 MGX 1/2 (2 DAILY IN THE MORNING AND EVENING) BID )
     Route: 065
  8. AQUACORT [Concomitant]
     Indication: PRODUCT USED FOR UNKNOWN INDICATION
     Dosage: 50 MICROGRAM
     Route: 065
  9. NUFAFLOQO [Concomitant]
     Indication: PRODUCT USED FOR UNKNOWN INDICATION
     Dosage: 200 MICROGRAM, TWO TIMES A DAY
     Route: 065
  10. NOVOPULMON [Concomitant]
     Active Substance: BUDESONIDE
     Dosage: 400, BID (2X DAILY (MORNING AND EVENING))
     Route: 055
     Dates: start: 201403, end: 201711
  11. VALSACOR [Concomitant]
     Active Substance: VALSARTAN
     Dosage: UNK
     Route: 065
     Dates: start: 201810
  12. LERCANIDIPINA [Concomitant]
     Active Substance: LERCANIDIPINE
     Indication: PRODUCT USED FOR UNKNOWN INDICATION
     Dosage: UNK, TWO TIMES A DAY, 2X DAILY (MORNING AND EVENING))
     Route: 065
  13. OFLOXACIN. [Concomitant]
     Active Substance: OFLOXACIN
     Indication: PRODUCT USED FOR UNKNOWN INDICATION
     Dosage: 200 MICROGRAM, TWO TIMES A DAY
     Route: 065
  14. RELVAR ELLIPTA [Concomitant]
     Active Substance: FLUTICASONE FUROATE\VILANTEROL TRIFENATATE
     Indication: PRODUCT USED FOR UNKNOWN INDICATION
     Dosage: 92?G/22?G, ONCE A DAY, (2X DAILY (MORNING AND EVENING))
     Route: 065
  15. RELVAR ELLIPTA [Concomitant]
     Active Substance: FLUTICASONE FUROATE\VILANTEROL TRIFENATATE
     Dosage: 184?G/22?G
     Route: 065
     Dates: start: 20180206
  16. VALSARTAN. [Suspect]
     Active Substance: VALSARTAN
     Indication: PRODUCT USED FOR UNKNOWN INDICATION
     Dosage: 40 MILLIGRAM, ONCE A DAY (IN MORNING)
     Route: 065
  17. SPIRO [Concomitant]
     Indication: PRODUCT USED FOR UNKNOWN INDICATION
     Dosage: 12.5 MILLIGRAM
     Route: 065
  18. VALSARTAN HEXAL [Suspect]
     Active Substance: VALSARTAN
     Indication: HYPERTENSION
     Dosage: 320 MILLIGRAM
     Route: 065
     Dates: start: 20140801, end: 201609
  19. VALSARTAN 1A PHARMA PLUS [Suspect]
     Active Substance: HYDROCHLOROTHIAZIDE\VALSARTAN
     Dosage: 320 MILLIGRAM (320 MG, 25 MG)
     Route: 065
     Dates: start: 201805, end: 20181015
  20. CANDESARTAN. [Concomitant]
     Active Substance: CANDESARTAN
     Indication: PRODUCT USED FOR UNKNOWN INDICATION
     Dosage: UNK
     Route: 065
  21. PENTAZOLE [Concomitant]
     Indication: PRODUCT USED FOR UNKNOWN INDICATION
     Dosage: 20 MILLIGRAM, ONCE A DAY
     Route: 065
  22. VALSARTAN 1A PHARMA PLUS [Suspect]
     Active Substance: HYDROCHLOROTHIAZIDE\VALSARTAN
     Dosage: 320 MILLIGRAM (320 MG/25 MG)
     Route: 065
     Dates: start: 201401, end: 201408
  23. ALAVAC?S [Concomitant]
     Indication: PRODUCT USED FOR UNKNOWN INDICATION
     Dosage: UNK
     Route: 065
  24. AMOXI [Concomitant]
     Active Substance: AMOXICILLIN
     Indication: PRODUCT USED FOR UNKNOWN INDICATION
     Dosage: 1 DOSAGE FORM, 3 TIMES A DAY
     Route: 065
  25. BECLOMETASON?CT [Concomitant]
     Indication: PRODUCT USED FOR UNKNOWN INDICATION
     Dosage: 0.1, BID (2X DAILY (MORNING AND EVENING))
     Route: 055
     Dates: end: 201403
  26. VALSACOR [Concomitant]
     Active Substance: VALSARTAN
     Indication: HYPERTENSION
     Dosage: UNK
     Route: 065
     Dates: start: 201701, end: 201704

REACTIONS (79)
  - Upper limb fracture [Unknown]
  - Arthropod bite [Unknown]
  - Ocular hyperaemia [Unknown]
  - Block vertebra [Unknown]
  - Oedema [Unknown]
  - Joint swelling [Unknown]
  - Plantar fasciitis [Unknown]
  - Dermatitis atopic [Unknown]
  - Dysaesthesia [Unknown]
  - Herpes zoster [Unknown]
  - Diarrhoea infectious [Unknown]
  - Vein disorder [Unknown]
  - Spinal osteoarthritis [Unknown]
  - Lice infestation [Unknown]
  - Synovial cyst [Unknown]
  - Trigeminal neuralgia [Recovered/Resolved]
  - Candida infection [Unknown]
  - Peripheral venous disease [Unknown]
  - Herpes simplex [Unknown]
  - Oropharyngeal pain [Unknown]
  - Myosclerosis [Unknown]
  - Musculoskeletal discomfort [Unknown]
  - Muscle rigidity [Unknown]
  - Facial pain [Unknown]
  - Peak expiratory flow rate abnormal [Unknown]
  - Musculoskeletal chest pain [Recovering/Resolving]
  - Product contamination [Unknown]
  - Skin lesion [Unknown]
  - Gastroenteritis salmonella [Unknown]
  - Conjunctivitis [Unknown]
  - Dyspnoea [Unknown]
  - Lymphoedema [Unknown]
  - Foot deformity [Unknown]
  - Pulmonary function test decreased [Unknown]
  - Ear pain [Unknown]
  - General physical health deterioration [Unknown]
  - Ligament sprain [Unknown]
  - Respiratory tract infection [Unknown]
  - Tendonitis [Unknown]
  - Cough [Unknown]
  - Spinal disorder [Unknown]
  - Intercostal neuralgia [Recovering/Resolving]
  - Blister [Unknown]
  - Mental disorder [Unknown]
  - Conjunctival irritation [Unknown]
  - Fall [Unknown]
  - Peripheral swelling [Unknown]
  - Radius fracture [Unknown]
  - Eye pain [Unknown]
  - Otitis externa [Unknown]
  - Poor quality sleep [Not Recovered/Not Resolved]
  - Nasopharyngitis [Unknown]
  - Dermatitis contact [Recovering/Resolving]
  - Pain [Recovered/Resolved]
  - Dyspnoea exertional [Unknown]
  - Sinusitis [Unknown]
  - Pain in extremity [Unknown]
  - Headache [Unknown]
  - Fatigue [Unknown]
  - Conjunctivitis allergic [Unknown]
  - Movement disorder [Unknown]
  - Polyneuropathy [Unknown]
  - Diabetes mellitus [Unknown]
  - Eye inflammation [Unknown]
  - Insomnia [Not Recovered/Not Resolved]
  - Upper respiratory tract infection [Unknown]
  - Listless [Unknown]
  - Asthma [Unknown]
  - Swelling face [Unknown]
  - Arteriosclerosis [Unknown]
  - Neck pain [Recovering/Resolving]
  - Arthralgia [Unknown]
  - Carpal collapse [Unknown]
  - Otosalpingitis [Unknown]
  - Emotional distress [Not Recovered/Not Resolved]
  - Viral infection [Unknown]
  - Contusion [Unknown]
  - Tendon disorder [Unknown]
  - Varicose ulceration [Unknown]

NARRATIVE: CASE EVENT DATE: 2014
